FAERS Safety Report 6279213-2 (Version None)
Quarter: 2009Q3

REPORT INFORMATION
  Report Type: 
  Country: None (occurrence: None)
  Receive Date: 20090723
  Receipt Date: 20080905
  Transmission Date: 20100115
  Serious: No
  Sender: FDA-Public Use
  Company Number: US-AMGEN-KDL306368

PATIENT
  Sex: Female
  Weight: 79.5 kg

DRUGS (6)
  1. PROCRIT [Suspect]
     Indication: RENAL FAILURE CHRONIC
     Dates: start: 20080728
  2. DIOVAN [Concomitant]
  3. DIURETICS [Concomitant]
  4. POTASSIUM CHLORIDE [Concomitant]
  5. CENTRUM SILVER [Concomitant]
  6. OSCAL D [Concomitant]

REACTIONS (2)
  - ALOPECIA [None]
  - HAEMOGLOBIN DECREASED [None]
